FAERS Safety Report 5061883-8 (Version None)
Quarter: 2006Q3

REPORT INFORMATION
  Report Type: 
  Country: None (occurrence: None)
  Receive Date: 20060726
  Receipt Date: 20050617
  Transmission Date: 20061208
  Serious: Yes (Hospitalization)
  Sender: FDA-Public Use
  Company Number: PHBS2005JP08857

PATIENT
  Age: 82 Year
  Sex: Male

DRUGS (13)
  1. LIVALO [Suspect]
     Indication: HYPERCHOLESTEROLAEMIA
     Dosage: 1 MG/DAY
     Route: 048
     Dates: start: 20050601, end: 20050615
  2. DIOVAN [Suspect]
     Indication: HYPERTENSION
     Dosage: 80 MG/DAY
     Route: 048
     Dates: start: 20050511, end: 20050615
  3. AMLODIN [Suspect]
     Dosage: 2.5 MG/DAY
     Route: 048
     Dates: start: 20050511, end: 20050615
  4. ALLOPURINOL [Suspect]
     Indication: HYPERURICAEMIA
     Dosage: 100 MG/DAY
     Route: 048
     Dates: start: 20050511, end: 20050615
  5. KREMEZIN [Suspect]
     Indication: RENAL FAILURE
     Dosage: 6 G/DAY
     Route: 048
     Dates: start: 20050511, end: 20050615
  6. LASIX [Concomitant]
     Indication: HYPERTENSION
     Dosage: 20 MG/DAY
     Dates: start: 20050511, end: 20050614
  7. ARGAMATE [Suspect]
     Indication: HYPERKALAEMIA
     Dosage: 50 G/DAY
     Route: 048
     Dates: start: 20050511, end: 20050615
  8. LAC B [Suspect]
     Route: 048
     Dates: end: 20050615
  9. PL [Concomitant]
  10. LOCHOL [Suspect]
     Indication: HYPERCHOLESTEROLAEMIA
     Dosage: 20 MG/DAY
     Route: 048
     Dates: start: 20050112, end: 20050531
  11. LIPOVAS [Concomitant]
     Indication: HYPERLIPIDAEMIA
     Dosage: 5MG/DAY
     Route: 048
     Dates: end: 20041214
  12. GOSHAJINKIGAN [Concomitant]
     Indication: DIURETIC EFFECT
     Dosage: 7.5MG/DAY
     Route: 048
     Dates: start: 20041027, end: 20041116
  13. BERAPROST SODIUM [Suspect]
     Indication: ARTERIAL OCCLUSIVE DISEASE
     Dosage: 40 UG,QD
     Route: 048
     Dates: start: 20050511, end: 20050615

REACTIONS (9)
  - BLOOD CREATINE PHOSPHOKINASE INCREASED [None]
  - BLOOD CREATINE PHOSPHOKINASE MB [None]
  - DIALYSIS [None]
  - DIARRHOEA [None]
  - FALL [None]
  - MUSCULAR WEAKNESS [None]
  - MYOGLOBIN BLOOD INCREASED [None]
  - RENAL FAILURE ACUTE [None]
  - RHABDOMYOLYSIS [None]
